FAERS Safety Report 8490618-1 (Version None)
Quarter: 2012Q3

REPORT INFORMATION
  Report Type: 
  Country: None (occurrence: None)
  Receive Date: 20120705
  Receipt Date: 20120627
  Transmission Date: 20120928
  Serious: Yes (Hospitalization, Other)
  Sender: FDA-Public Use
  Company Number: US-ABBOTT-12P-163-0946629-00

PATIENT
  Sex: Female
  Weight: 80.812 kg

DRUGS (2)
  1. HUMIRA [Suspect]
     Indication: RHEUMATOID ARTHRITIS
     Route: 058
     Dates: start: 20110101, end: 20111201
  2. HUMIRA [Suspect]
     Route: 058
     Dates: start: 20120502

REACTIONS (7)
  - PAIN IN EXTREMITY [None]
  - ARTHRALGIA [None]
  - ARTHRITIS [None]
  - KNEE ARTHROPLASTY [None]
  - IMPAIRED WORK ABILITY [None]
  - GAIT DISTURBANCE [None]
  - PAIN [None]
